FAERS Safety Report 11052194 (Version 2)
Quarter: 2015Q4

REPORT INFORMATION
  Report Type: Report from Study
  Country: BR (occurrence: BR)
  Receive Date: 20150421
  Receipt Date: 20151227
  Transmission Date: 20160304
  Serious: Yes (Death, Hospitalization, Other)
  Sender: FDA-Public Use
  Company Number: PHHY2015BR043347

PATIENT
  Sex: Female
  Weight: 75 kg

DRUGS (3)
  1. DIOVAN AMLO FIX [Suspect]
     Active Substance: AMLODIPINE\VALSARTAN
     Indication: HYPERTENSION
     Dosage: 1 DF, QD
     Route: 065
  2. METFORMIN [Concomitant]
     Active Substance: METFORMIN HYDROCHLORIDE
     Indication: DIABETES MELLITUS
     Dosage: UNK STARTED FROM 3 YEARS AGO AND STOPPED 21 DAYS AGO
     Route: 048
  3. DIOVAN [Suspect]
     Active Substance: VALSARTAN
     Indication: HYPERTENSION
     Dosage: 1 DF, QD (2 YEARS AGO AND STOPPED 21 DAYS AGO)
     Route: 048

REACTIONS (5)
  - Gastric disorder [Recovering/Resolving]
  - Bile duct cancer [Fatal]
  - Asthenia [Recovering/Resolving]
  - Weight decreased [Recovering/Resolving]
  - Bile duct obstruction [Recovering/Resolving]
